FAERS Safety Report 4367226-7 (Version None)
Quarter: 2004Q2

REPORT INFORMATION
  Report Type: 
  Country: None (occurrence: None)
  Receive Date: 20040526
  Receipt Date: 20040512
  Transmission Date: 20050107
  Serious: Yes (Hospitalization)
  Sender: FDA-Public Use
  Company Number: ZONI001420

PATIENT
  Age: 21 Year
  Sex: Female

DRUGS (3)
  1. ZONISAMIDE (ZONISAMIDE) [Suspect]
     Indication: CONVULSION
     Dosage: 500 MG DAILY ORAL
     Route: 048
  2. CARBAMAZEPINE [Suspect]
     Indication: CLONIC CONVULSION
  3. PRIMIDONE [Concomitant]

REACTIONS (4)
  - GAIT DISTURBANCE [None]
  - HALLUCINATION, VISUAL [None]
  - MENTAL STATUS CHANGES [None]
  - SOMNOLENCE [None]
